FAERS Safety Report 12241568 (Version 3)
Quarter: 2016Q2

REPORT INFORMATION
  Report Type: Spontaneous
  Country: US (occurrence: US)
  Receive Date: 20160406
  Receipt Date: 20160429
  Transmission Date: 20160815
  Serious: Yes (Other)
  Sender: FDA-Public Use
  Company Number: ALCN2016US002361

PATIENT
  Age: 80 Year
  Sex: Male

DRUGS (2)
  1. BETADINE [Suspect]
     Active Substance: POVIDONE-IODINE
     Indication: INTRAOCULAR LENS IMPLANT
     Dosage: UNK
     Route: 047
     Dates: start: 20160222, end: 20160222
  2. BSS [Suspect]
     Active Substance: CALCIUM CHLORIDE\MAGNESIUM CHLORIDE\POTASSIUM CHLORIDE\SODIUM ACETATE\SODIUM CHLORIDE\SODIUM CITRATE
     Indication: INTRAOCULAR LENS IMPLANT
     Dosage: UNK
     Route: 047
     Dates: start: 20160322, end: 20160322

REACTIONS (2)
  - Anterior chamber fibrin [Unknown]
  - Toxic anterior segment syndrome [Unknown]

NARRATIVE: CASE EVENT DATE: 20160323
